FAERS Safety Report 9511867 (Version 1)
Quarter: 2013Q1

REPORT INFORMATION
  Report Type: Spontaneous
  Country: US (occurrence: None)
  Receive Date: 20130305
  Receipt Date: 20130305
  Transmission Date: 20140127
  Serious: Yes (Other)
  Sender: FDA-Public Use
  Company Number: 163-21880-12103584

PATIENT
  Age: 55 Year
  Sex: Male

DRUGS (6)
  1. REVLIMID (LENALIDOMIDE) (CAPSULES) [Suspect]
     Indication: LYMPHOMA
     Dates: start: 201203
  2. LISINOPRIL (LISINOPRIL) [Concomitant]
  3. DIGOXIN (DIGOXIN) [Concomitant]
  4. CARVEDILOL (CARVEDILOL) [Concomitant]
  5. FUROSEMIDE (FUROSEMIDE) [Concomitant]
  6. XARELTO (RIVAROXABAN) [Concomitant]

REACTIONS (1)
  - Dyspnoea [None]
